FAERS Safety Report 9728040 (Version 1)
Quarter: 2013Q4

REPORT INFORMATION
  Report Type: Spontaneous
  Country: US (occurrence: None)
  Receive Date: 20131203
  Receipt Date: 20131203
  Transmission Date: 20140711
  Serious: No
  Sender: FDA-Public Use
  Company Number: None

PATIENT
  Age: 78 Year
  Sex: Female

DRUGS (1)
  1. NITROFURANTOIN [Suspect]
     Indication: URINARY TRACT INFECTION
     Dosage: ONE CAPSULE, TWICE DAILY, TAKEN BY MOUTH
     Dates: start: 20131130, end: 20131130

REACTIONS (3)
  - Miosis [None]
  - Pharyngeal oedema [None]
  - Chest discomfort [None]
